FAERS Safety Report 13761303 (Version 1)
Quarter: 2017Q3

REPORT INFORMATION
  Report Type: Spontaneous
  Country: US (occurrence: US)
  Receive Date: 20170717
  Receipt Date: 20170717
  Transmission Date: 20171127
  Serious: No
  Sender: FDA-Public Use
  Company Number: US-BIOGEN-2017BI00432616

PATIENT
  Sex: Female

DRUGS (1)
  1. AVONEX [Suspect]
     Active Substance: INTERFERON BETA-1A
     Indication: MULTIPLE SCLEROSIS
     Route: 065
     Dates: start: 1999

REACTIONS (6)
  - Visual field defect [Unknown]
  - Cognitive disorder [Unknown]
  - Depression [Unknown]
  - Lower limb fracture [Unknown]
  - Fatigue [Unknown]
  - Ankle fracture [Unknown]
